FAERS Safety Report 7038119-1 (Version None)
Quarter: 2010Q4

REPORT INFORMATION
  Report Type: 
  Country: None (occurrence: None)
  Receive Date: 20101011
  Receipt Date: 20100928
  Transmission Date: 20110411
  Serious: Yes (Hospitalization)
  Sender: FDA-Public Use
  Company Number: BR-WATSON-2010-13131

PATIENT
  Age: 16 Year
  Sex: Male

DRUGS (3)
  1. CHLOROQUINE (WATSON LABORATORIES) [Suspect]
     Indication: MALARIA
     Dosage: 10 MG/KG, DAILY, DAY 1
     Route: 065
  2. CHLOROQUINE (WATSON LABORATORIES) [Suspect]
     Dosage: 7.5 MG/KG, DAILY, DAY 2 + 3
     Route: 065
  3. PRIMAQUINE [Suspect]
     Indication: MALARIA
     Dosage: 0.5 MG/KG, DAILY
     Route: 065

REACTIONS (3)
  - MYOGLOBINURIA [None]
  - RENAL FAILURE ACUTE [None]
  - RHABDOMYOLYSIS [None]
